FAERS Safety Report 18688702 (Version 1)
Quarter: 2020Q4

REPORT INFORMATION
  Report Type: Spontaneous
  Country: US (occurrence: US)
  Receive Date: 20201231
  Receipt Date: 20201231
  Transmission Date: 20210114
  Serious: Yes (Life-Threatening)
  Sender: FDA-Public Use
  Company Number: None

PATIENT
  Age: 68 Year
  Sex: Female
  Weight: 97.5 kg

DRUGS (3)
  1. ACETYLCYSTEINE. [Suspect]
     Active Substance: ACETYLCYSTEINE
     Indication: OVERDOSE
     Dosage: ?          OTHER FREQUENCY:ONCE;?
     Route: 042
  2. ACETAMINOPHEN 500MG [Suspect]
     Active Substance: ACETAMINOPHEN
     Dosage: 4 TABS/DOSE X4 DOSES PER DAY (TOTAL DOSE OF 8000 MG)
  3. ASPIRIN 325MG [Suspect]
     Active Substance: ASPIRIN
     Dosage: - MG)

REACTIONS (4)
  - Nausea [None]
  - Pharyngeal swelling [None]
  - Pruritus [None]
  - Overdose [None]

NARRATIVE: CASE EVENT DATE: 20201230
